FAERS Safety Report 20149137 (Version 2)
Quarter: 2023Q1

REPORT INFORMATION
  Report Type: Spontaneous
  Country: US (occurrence: US)
  Receive Date: 20211205
  Receipt Date: 20230324
  Transmission Date: 20230418
  Serious: No
  Sender: FDA-Public Use
  Company Number: US-SA-SAC20211129000396

PATIENT
  Age: 43 Year
  Sex: Male
  Weight: 63.5 kg

DRUGS (3)
  1. DUPIXENT [Suspect]
     Active Substance: DUPILUMAB
     Indication: Dermatitis atopic
     Dosage: 300 MG, QOW
     Route: 058
     Dates: start: 202008
  2. CEQUA [Concomitant]
     Active Substance: CYCLOSPORINE
  3. COVID-19 VACCINE [Concomitant]
     Indication: Immunisation

REACTIONS (5)
  - Eye pain [Unknown]
  - Secretion discharge [Unknown]
  - Pruritus [Unknown]
  - Dry eye [Recovering/Resolving]
  - Eye irritation [Not Recovered/Not Resolved]

NARRATIVE: CASE EVENT DATE: 20200801
